FAERS Safety Report 10767239 (Version 1)
Quarter: 2015Q1

REPORT INFORMATION
  Report Type: Spontaneous
  Country: US (occurrence: US)
  Receive Date: 20150205
  Receipt Date: 20150205
  Transmission Date: 20150721
  Serious: No
  Sender: FDA-Public Use
  Company Number: US-GALDERMA-US14004536

PATIENT
  Age: 17 Year
  Sex: Female

DRUGS (5)
  1. COVER GIRL LIQUID FOUNDATION [Concomitant]
     Route: 061
  2. CETAPHIL DERMACONTROL FOAM WASH [Suspect]
     Active Substance: COSMETICS
     Indication: THERAPEUTIC SKIN CARE TOPICAL
     Route: 061
     Dates: start: 20141125, end: 20141125
  3. EPIDUO [Suspect]
     Active Substance: ADAPALENE\BENZOYL PEROXIDE
     Indication: ACNE
     Route: 061
     Dates: start: 20141125, end: 20141125
  4. MAYBELLINE CONCEALER [Concomitant]
     Route: 061
  5. NEUTROGENA MAKE UP REMOVING WIPES [Concomitant]
     Indication: THERAPEUTIC SKIN CARE TOPICAL
     Route: 061

REACTIONS (1)
  - Erythema [Not Recovered/Not Resolved]

NARRATIVE: CASE EVENT DATE: 20141126
